FAERS Safety Report 7013423-1 (Version None)
Quarter: 2010Q3

REPORT INFORMATION
  Report Type: 
  Country: None (occurrence: None)
  Receive Date: 20100924
  Receipt Date: 20100909
  Transmission Date: 20110219
  Serious: No
  Sender: FDA-Public Use
  Company Number: B0628376A

PATIENT
  Sex: Female
  Weight: 50 kg

DRUGS (29)
  1. RELENZA [Suspect]
     Indication: INFLUENZA
     Dosage: 20MG PER DAY
     Route: 055
     Dates: start: 20100116, end: 20100120
  2. DASEN [Concomitant]
     Dosage: 3IUAX PER DAY
     Route: 048
     Dates: start: 20100727, end: 20100730
  3. UNKNOWN MEDICATION [Concomitant]
     Dosage: 3IUAX PER DAY
     Route: 048
     Dates: start: 20100727, end: 20100730
  4. CEFZON [Concomitant]
     Dosage: 2IUAX PER DAY
     Route: 048
     Dates: start: 20100726, end: 20100726
  5. CEFZON [Concomitant]
     Dosage: 3IUAX PER DAY
     Route: 048
     Dates: start: 20100727, end: 20100730
  6. SELBEX [Concomitant]
     Dosage: 3IUAX PER DAY
     Route: 048
     Dates: start: 20100727, end: 20100730
  7. UNKNOWN DRUG [Concomitant]
     Indication: ANTIPYRESIS
     Dosage: 1.5G PER DAY
     Route: 048
     Dates: start: 20100727, end: 20100729
  8. NELBON [Concomitant]
     Route: 048
  9. DASEN [Concomitant]
     Indication: NASOPHARYNGITIS
     Dosage: 3IUAX PER DAY
     Route: 048
     Dates: start: 20091209, end: 20091215
  10. DASEN [Concomitant]
     Dosage: 3IUAX PER DAY
     Route: 048
     Dates: start: 20100326, end: 20100401
  11. CEFZON [Concomitant]
     Indication: INFECTION PROPHYLAXIS
     Dosage: 3IUAX PER DAY
     Route: 048
     Dates: start: 20100302, end: 20100306
  12. CALONAL [Concomitant]
     Indication: HEADACHE
     Route: 048
     Dates: start: 20091209
  13. CALONAL [Concomitant]
     Route: 048
     Dates: start: 20100122
  14. CALONAL [Concomitant]
     Dosage: 6IUAX PER DAY
     Route: 048
     Dates: start: 20100302, end: 20100308
  15. CALONAL [Concomitant]
     Dosage: 6IUAX PER DAY
     Route: 048
     Dates: start: 20100326, end: 20100401
  16. RITODRINE HYDROCHLORIDE [Concomitant]
     Indication: PROPHYLAXIS
     Dosage: 3IUAX PER DAY
     Route: 048
     Dates: start: 20100302, end: 20100308
  17. FERRUM [Concomitant]
     Dosage: 1IUAX PER DAY
     Route: 048
     Dates: start: 20100419, end: 20100516
  18. FERRUM [Concomitant]
     Dosage: 1IUAX PER DAY
     Route: 048
     Dates: start: 20100614, end: 20100627
  19. GASLON N [Concomitant]
     Dosage: 1IUAX PER DAY
     Route: 048
     Dates: start: 20100419, end: 20100516
  20. GASLON N [Concomitant]
     Dosage: 1IUAX PER DAY
     Route: 048
     Dates: start: 20100614, end: 20100627
  21. POSTERISAN [Concomitant]
     Indication: ANAL FISTULA
     Route: 061
     Dates: start: 20100729
  22. MUCOSTA [Concomitant]
     Route: 048
  23. UNKNOWN MEDICATION [Concomitant]
     Route: 048
  24. AMERGE [Concomitant]
     Route: 048
  25. ETICALM [Concomitant]
     Route: 048
  26. TRANEXAMIC ACID [Concomitant]
     Indication: NASOPHARYNGITIS
     Dosage: 6IUAX PER DAY
     Route: 048
     Dates: start: 20091209, end: 20091215
  27. PA [Concomitant]
     Indication: NASOPHARYNGITIS
     Dosage: 6IUAX PER DAY
     Dates: start: 20091209, end: 20091215
  28. CHINESE MEDICINE [Concomitant]
     Indication: VOMITING IN PREGNANCY
     Dosage: 7.5IUAX PER DAY
     Dates: start: 20091229, end: 20100118
  29. CHINESE MEDICINE [Concomitant]
     Indication: HEADACHE
     Dosage: 7.5IUAX PER DAY
     Dates: start: 20091229, end: 20100218

REACTIONS (2)
  - DELIVERY [None]
  - DRUG EXPOSURE DURING PREGNANCY [None]
